FAERS Safety Report 9482414 (Version 2)
Quarter: 2013Q4

REPORT INFORMATION
  Report Type: Spontaneous
  Country: IT (occurrence: None)
  Receive Date: 20130822
  Receipt Date: 20131017
  Transmission Date: 20140711
  Serious: Yes (Other)
  Sender: FDA-Public Use
  Company Number: 2013AP007273

PATIENT
  Age: 76 Year
  Sex: Female

DRUGS (3)
  1. AMLODIPINE BESILATE [Suspect]
     Route: 048
     Dates: start: 20120601, end: 20130531
  2. FUROSEMIDE (FUROSEMIDE) [Suspect]
     Route: 048
     Dates: start: 20120601, end: 20130531
  3. CANRENONE [Suspect]
     Route: 048
     Dates: start: 20120601, end: 20130531

REACTIONS (3)
  - Dehydration [None]
  - Hypotension [None]
  - Presyncope [None]
